FAERS Safety Report 10277489 (Version 1)
Quarter: 2014Q3

REPORT INFORMATION
  Report Type: Spontaneous
  Country: AU (occurrence: AU)
  Receive Date: 20140703
  Receipt Date: 20140703
  Transmission Date: 20150326
  Serious: Yes (Death, Hospitalization)
  Sender: FDA-Public Use
  Company Number: AU-BAXTER-2014BAX032541

PATIENT
  Age: 63 Year
  Sex: Male

DRUGS (3)
  1. BAXTER 0.9% SODIUM CHLORIDE 9G_L INJECTION BP BAG AHB1324 [Suspect]
     Active Substance: SODIUM CHLORIDE
     Indication: HAEMODIALYSIS
     Route: 065
     Dates: end: 20140613
  2. HEPARIN PFIZER [Suspect]
     Active Substance: HEPARIN SODIUM
     Indication: HAEMODIALYSIS
     Route: 065
     Dates: end: 20140613
  3. SELECTBAG ONE ASX 250 [Suspect]
     Active Substance: ACETIC ACID\ANHYDROUS DEXTROSE\CALCIUM CATION\MAGNESIUM CATION\POTASSIUM CATION
     Indication: HAEMODIALYSIS
     Route: 010

REACTIONS (2)
  - Brain injury [Fatal]
  - Acute myocardial infarction [Fatal]

NARRATIVE: CASE EVENT DATE: 20140609
